FAERS Safety Report 5445950-2 (Version None)
Quarter: 2007Q3

REPORT INFORMATION
  Report Type: 
  Country: None (occurrence: None)
  Receive Date: 20070907
  Receipt Date: 20070828
  Transmission Date: 20080115
  Serious: Yes (Hospitalization)
  Sender: FDA-Public Use
  Company Number: FR-JNJFOC-20060606128

PATIENT
  Age: 74 Year
  Sex: Female

DRUGS (3)
  1. REMICADE [Suspect]
     Indication: RHEUMATOID ARTHRITIS
     Dosage: 12 DOSES
     Route: 042
  2. CORTANCYL [Concomitant]
     Route: 048
  3. HYDROCORTISONE [Concomitant]
     Route: 048

REACTIONS (2)
  - DISSEMINATED TUBERCULOSIS [None]
  - PERITONITIS [None]
